FAERS Safety Report 5745315-X (Version None)
Quarter: 2008Q2

REPORT INFORMATION
  Report Type: 
  Country: None (occurrence: None)
  Receive Date: 20080521
  Receipt Date: 20080516
  Transmission Date: 20081010
  Serious: Yes (Hospitalization, Other)
  Sender: FDA-Public Use
  Company Number: GB-ROCHE-562564

PATIENT
  Sex: Male
  Weight: 102 kg

DRUGS (2)
  1. ORLISTAT [Suspect]
     Indication: OBESITY
     Route: 048
     Dates: start: 20080104, end: 20080422
  2. UNSPECIFIED MEDICATIONS [Concomitant]

REACTIONS (3)
  - ASTHMA [None]
  - BRONCHIECTASIS [None]
  - LOWER RESPIRATORY TRACT INFECTION [None]
